FAERS Safety Report 12921620 (Version 1)
Quarter: 2016Q4

REPORT INFORMATION
  Report Type: Report from Study
  Country: US (occurrence: US)
  Receive Date: 20161108
  Receipt Date: 20161108
  Transmission Date: 20170207
  Serious: Yes (Other)
  Sender: FDA-Public Use
  Company Number: US-BAYER-2016-199073

PATIENT
  Age: 51 Year
  Sex: Male

DRUGS (2)
  1. XOFIGO [Suspect]
     Active Substance: RADIUM RA-223 DICHLORIDE
     Indication: METASTASES TO BONE
     Dosage: UNK
     Dates: end: 20161028
  2. XOFIGO [Suspect]
     Active Substance: RADIUM RA-223 DICHLORIDE
     Indication: PROSTATE CANCER STAGE IV
     Dosage: 93.45 UCI, ONCE EVERY 28 DAYS
     Route: 042
     Dates: start: 20160921

REACTIONS (2)
  - General physical health deterioration [None]
  - Spinal cord neoplasm [None]

NARRATIVE: CASE EVENT DATE: 20161028
